FAERS Safety Report 16068313 (Version 3)
Quarter: 2019Q1

REPORT INFORMATION
  Report Type: Spontaneous
  Country: JP (occurrence: JP)
  Receive Date: 20190313
  Receipt Date: 20190325
  Transmission Date: 20190418
  Serious: Yes (Death, Other)
  Sender: FDA-Public Use
  Company Number: JP-PFIZER INC-2019089813

PATIENT
  Age: 8 Decade
  Sex: Male

DRUGS (1)
  1. LORBRENA [Suspect]
     Active Substance: LORLATINIB
     Dosage: 100 MG, DAILY
     Route: 048

REACTIONS (3)
  - Neoplasm progression [Fatal]
  - Delirium [Unknown]
  - Hyperthermia [Unknown]

NARRATIVE: CASE EVENT DATE: 20190221
